FAERS Safety Report 19652249 (Version 1)
Quarter: 2021Q3

REPORT INFORMATION
  Report Type: Spontaneous
  Country: CN (occurrence: CN)
  Receive Date: 20210803
  Receipt Date: 20210803
  Transmission Date: 20211014
  Serious: Yes (Hospitalization)
  Sender: FDA-Public Use
  Company Number: CN-PFIZER INC-202100924071

PATIENT
  Age: 70 Year
  Sex: Male
  Weight: 59 kg

DRUGS (1)
  1. ZYVOX [Suspect]
     Active Substance: LINEZOLID
     Indication: ABDOMINAL INFECTION
     Dosage: 0.6 G, 2X/DAY
     Route: 041
     Dates: start: 20210701, end: 20210707

REACTIONS (4)
  - Off label use [Unknown]
  - Condition aggravated [Unknown]
  - Platelet count decreased [Recovering/Resolving]
  - Oesophageal carcinoma [Unknown]

NARRATIVE: CASE EVENT DATE: 20210701
